FAERS Safety Report 10392416 (Version 1)
Quarter: 2014Q3

REPORT INFORMATION
  Report Type: Spontaneous
  Country: US (occurrence: None)
  Receive Date: 20140815
  Receipt Date: 20140815
  Transmission Date: 20150326
  Serious: Yes (Death, Hospitalization)
  Sender: FDA-Public Use
  Company Number: 20111221VANCO2529

PATIENT
  Age: 78 Year
  Sex: Male

DRUGS (1)
  1. VANCOCIN [Suspect]
     Active Substance: VANCOMYCIN HYDROCHLORIDE
     Indication: CLOSTRIDIUM DIFFICILE INFECTION
     Dosage: UNKNOWN ( 4 IN 1 D), ORAL
     Route: 048
     Dates: start: 2011, end: 2011

REACTIONS (1)
  - Death [None]

NARRATIVE: CASE EVENT DATE: 2011
